FAERS Safety Report 12699054 (Version 1)
Quarter: 2016Q3

REPORT INFORMATION
  Report Type: Spontaneous
  Country: US (occurrence: US)
  Receive Date: 20160830
  Receipt Date: 20160830
  Transmission Date: 20161109
  Serious: Yes (Hospitalization, Other)
  Sender: FDA-Public Use
  Company Number: US-GLAXOSMITHKLINE-US2016125156

PATIENT
  Age: 66 Year
  Sex: Male

DRUGS (5)
  1. FLOMAX [Concomitant]
     Active Substance: TAMSULOSIN HYDROCHLORIDE
  2. PRAVASTATIN. [Concomitant]
     Active Substance: PRAVASTATIN
  3. VENTOLIN HFA [Suspect]
     Active Substance: ALBUTEROL SULFATE
     Indication: ASTHMA
     Dosage: 2 PUFF(S), PRN
     Route: 055
     Dates: start: 2014
  4. METOPROLOL. [Concomitant]
     Active Substance: METOPROLOL
  5. VENTOLIN HFA [Suspect]
     Active Substance: ALBUTEROL SULFATE
     Indication: CHRONIC OBSTRUCTIVE PULMONARY DISEASE

REACTIONS (5)
  - Renal cancer [Unknown]
  - Prostatic operation [Recovered/Resolved]
  - Transurethral prostatectomy [Unknown]
  - Laser therapy [Recovered/Resolved]
  - Renal surgery [Recovered/Resolved]

NARRATIVE: CASE EVENT DATE: 2016
